FAERS Safety Report 15427232 (Version 1)
Quarter: 2018Q3

REPORT INFORMATION
  Report Type: Spontaneous
  Country: US (occurrence: US)
  Receive Date: 20180925
  Receipt Date: 20180925
  Transmission Date: 20181010
  Serious: Yes (Other)
  Sender: FDA-Public Use
  Company Number: PHHY2018US099604

PATIENT
  Age: 76 Year
  Sex: Female

DRUGS (4)
  1. CARBOPLATIN. [Suspect]
     Active Substance: CARBOPLATIN
     Indication: LARYNGEAL CANCER STAGE IV
     Dosage: UNK UNK, QW
     Route: 065
  2. CARBOPLATIN. [Suspect]
     Active Substance: CARBOPLATIN
     Indication: OESOPHAGEAL CARCINOMA
  3. PACLITAXEL. [Suspect]
     Active Substance: PACLITAXEL
     Indication: OESOPHAGEAL CARCINOMA
  4. PACLITAXEL. [Suspect]
     Active Substance: PACLITAXEL
     Indication: LARYNGEAL CANCER STAGE IV
     Dosage: 50 MG/M2, QW
     Route: 065

REACTIONS (8)
  - Mucosal inflammation [Unknown]
  - Product use in unapproved indication [Unknown]
  - Toxicity to various agents [Unknown]
  - Dermatitis [Unknown]
  - Dry mouth [Unknown]
  - Dysphagia [Unknown]
  - Oesophageal stenosis [Unknown]
  - Fibrosis [Unknown]
